FAERS Safety Report 5155160-4 (Version None)
Quarter: 2006Q4

REPORT INFORMATION
  Report Type: 
  Country: None (occurrence: None)
  Receive Date: 20061121
  Receipt Date: 20061106
  Transmission Date: 20070319
  Serious: Yes (Other)
  Sender: FDA-Public Use
  Company Number: 2006UW21705

PATIENT
  Age: 63 Year
  Sex: Female
  Weight: 68 kg

DRUGS (8)
  1. ARIMIDEX [Suspect]
     Indication: BREAST CANCER
     Route: 048
     Dates: start: 20060815
  2. VITAMIN [Concomitant]
  3. CALCIUM [Concomitant]
  4. ASPIRIN [Concomitant]
  5. ESTROGENS SOL/INJ [Concomitant]
  6. BIRTH CONTROL PILLS [Concomitant]
  7. PROGESTIN WITH ESTROGEN [Concomitant]
  8. TAMOXIFEN CITRATE [Concomitant]

REACTIONS (1)
  - VISION BLURRED [None]
